FAERS Safety Report 6884044-6 (Version None)
Quarter: 2010Q3

REPORT INFORMATION
  Report Type: 
  Country: None (occurrence: None)
  Receive Date: 20100729
  Receipt Date: 20100716
  Transmission Date: 20110219
  Serious: Yes (Hospitalization, Other)
  Sender: FDA-Public Use
  Company Number: PHHY2009AU54121

PATIENT
  Sex: Male

DRUGS (3)
  1. CLOZARIL [Suspect]
     Dosage: 300 MG (MAX)
     Dates: start: 20071022, end: 20091120
  2. VALPROATE SODIUM [Concomitant]
     Indication: EPILEPSY
     Dosage: 1500 MG, BID
     Route: 048
  3. TOPIRAMATE [Concomitant]
     Indication: EPILEPSY
     Dosage: 100 MG, BID
     Route: 048

REACTIONS (14)
  - BLOOD CHOLESTEROL INCREASED [None]
  - BLOOD GLUCOSE INCREASED [None]
  - DECREASED APPETITE [None]
  - HALLUCINATION, AUDITORY [None]
  - HYPERSOMNIA [None]
  - INTENTIONAL OVERDOSE [None]
  - MALAISE [None]
  - MEAN CELL HAEMOGLOBIN DECREASED [None]
  - MENTAL DISORDER [None]
  - NEUTROPHIL COUNT INCREASED [None]
  - PLATELET COUNT DECREASED [None]
  - SUICIDAL IDEATION [None]
  - WEIGHT DECREASED [None]
  - WHITE BLOOD CELL COUNT INCREASED [None]
